FAERS Safety Report 23376916 (Version 1)
Quarter: 2024Q1

REPORT INFORMATION
  Report Type: Spontaneous
  Country: US (occurrence: US)
  Receive Date: 20240108
  Receipt Date: 20240108
  Transmission Date: 20240410
  Serious: Yes (Other)
  Sender: FDA-Public Use
  Company Number: US-SA-SAC20240105000948

PATIENT
  Age: 42 Year
  Sex: Female

DRUGS (4)
  1. KEVZARA [Suspect]
     Active Substance: SARILUMAB
     Indication: Rheumatoid arthritis
     Dosage: 200 MG, QOW
     Route: 058
  2. LYRICA [Concomitant]
     Active Substance: PREGABALIN
     Dosage: UNK
  3. CELECOXIB [Concomitant]
     Active Substance: CELECOXIB
  4. HUMIRA [Concomitant]
     Active Substance: ADALIMUMAB

REACTIONS (6)
  - Rheumatoid arthritis [Unknown]
  - Dizziness [Unknown]
  - Weight increased [Unknown]
  - Amnesia [Unknown]
  - Pituitary tumour benign [Unknown]
  - Somnolence [Unknown]

NARRATIVE: CASE EVENT DATE: 20230703
